FAERS Safety Report 5721327-7 (Version None)
Quarter: 2008Q2

REPORT INFORMATION
  Report Type: 
  Country: None (occurrence: None)
  Receive Date: 20080428
  Receipt Date: 20080428
  Transmission Date: 20081010
  Serious: Yes (Hospitalization)
  Sender: FDA-Public Use
  Company Number: None

PATIENT
  Age: 80 Year
  Sex: Male

DRUGS (4)
  1. FENTANYL [Suspect]
  2. FERROUS SULFATE TAB [Suspect]
  3. CALCIUM [Suspect]
  4. TOLTERODINE TARTRATE [Suspect]

REACTIONS (3)
  - BACK PAIN [None]
  - DELIRIUM [None]
  - ILEUS [None]
